FAERS Safety Report 7701527-7 (Version None)
Quarter: 2011Q3

REPORT INFORMATION
  Report Type: 
  Country: None (occurrence: None)
  Receive Date: 20110822
  Receipt Date: 20100826
  Transmission Date: 20111222
  Serious: No
  Sender: FDA-Public Use
  Company Number: US-BAYER-201034661NA

PATIENT
  Age: 49 Year
  Sex: Female

DRUGS (1)
  1. ANGELIQ [Suspect]
     Indication: HOT FLUSH
     Dosage: UNK
     Dates: start: 20100801

REACTIONS (3)
  - CHEST PAIN [None]
  - ALOPECIA [None]
  - MUSCLE SPASMS [None]
